FAERS Safety Report 10878504 (Version 1)
Quarter: 2015Q1

REPORT INFORMATION
  Report Type: Spontaneous
  Country: US (occurrence: US)
  Receive Date: 20150302
  Receipt Date: 20150302
  Transmission Date: 20150721
  Serious: No
  Sender: FDA-Public Use
  Company Number: US-ABBVIE-15P-163-1349765-00

PATIENT
  Age: 42 Year
  Sex: Male

DRUGS (2)
  1. ANDROGEL [Suspect]
     Active Substance: TESTOSTERONE
     Indication: BLOOD TESTOSTERONE DECREASED
     Route: 065
  2. VITAMIN D [Concomitant]
     Active Substance: CHOLECALCIFEROL
     Indication: VITAMIN D DEFICIENCY

REACTIONS (17)
  - Memory impairment [Unknown]
  - Pruritus [Unknown]
  - Disturbance in attention [Unknown]
  - Brow ptosis [Unknown]
  - Onychoclasis [Unknown]
  - Cognitive disorder [Unknown]
  - Skin exfoliation [Unknown]
  - Eyelid ptosis [Unknown]
  - Nail ridging [Unknown]
  - Tinea infection [Unknown]
  - Peripheral coldness [Unknown]
  - Fatigue [Unknown]
  - Granuloma annulare [Unknown]
  - Weight increased [Unknown]
  - Alopecia [Unknown]
  - Constipation [Unknown]
  - Dry skin [Unknown]
